FAERS Safety Report 12377866 (Version 2)
Quarter: 2016Q2

REPORT INFORMATION
  Report Type: Spontaneous
  Country: US (occurrence: US)
  Receive Date: 20160517
  Receipt Date: 20160608
  Transmission Date: 20160815
  Serious: No
  Sender: FDA-Public Use
  Company Number: US-JNJFOC-20160415995

PATIENT
  Age: 81 Year
  Sex: Female
  Weight: 65.77 kg

DRUGS (3)
  1. ROBITUSSIN (GUAIFENESIN) [Concomitant]
     Active Substance: GUAIFENESIN
     Indication: NASOPHARYNGITIS
     Route: 065
  2. TYLENOL EXTRA STRENGTH [Suspect]
     Active Substance: ACETAMINOPHEN
     Indication: NASOPHARYNGITIS
     Dosage: TOOK 1 TYLENOL CAPLET AT A TIME
     Route: 048
     Dates: start: 20160413
  3. ROBITUSSIN (GUAIFENESIN) [Concomitant]
     Active Substance: GUAIFENESIN
     Indication: HEADACHE
     Route: 065

REACTIONS (2)
  - Incorrect dose administered [Recovered/Resolved]
  - Abdominal discomfort [Recovered/Resolved]

NARRATIVE: CASE EVENT DATE: 20160413
